FAERS Safety Report 22246781 (Version 2)
Quarter: 2023Q2

REPORT INFORMATION
  Report Type: Spontaneous
  Country: GB (occurrence: GB)
  Receive Date: 20230424
  Receipt Date: 20230517
  Transmission Date: 20230722
  Serious: Yes (Life-Threatening, Hospitalization, Other)
  Sender: FDA-Public Use
  Company Number: GB-Hikma Pharmaceuticals USA Inc.-GB-H14001-23-00973

PATIENT
  Age: 42 Year
  Sex: Female
  Weight: 71.1 kg

DRUGS (3)
  1. CARBOPLATIN [Suspect]
     Active Substance: CARBOPLATIN
     Indication: Anal squamous cell carcinoma
     Dosage: UNKNOWNAUC 5, DAY 1 OF EACH 28-DAY CYCLE, THERAPY END DATE : NOT ASKED
     Route: 042
     Dates: start: 20221202, end: 20230228
  2. PACLITAXEL [Suspect]
     Active Substance: PACLITAXEL
     Indication: Anal squamous cell carcinoma
     Dosage: 80ML/M2, THERAPY END DATE : NOT ASKED,ON DAYS 1, 8, 15 OF EACH 28-DAY CYCLE,
     Route: 042
     Dates: start: 20221202, end: 20230228
  3. RETIFANLIMAB [Suspect]
     Active Substance: RETIFANLIMAB
     Indication: Anal squamous cell carcinoma
     Dosage: THERAPY END DATE : NOT ASKED,  UNIT DOSE : 500 MG, DAY 1 OF EACH 28-DAY CYCLE
     Route: 042
     Dates: start: 20221202, end: 20230228

REACTIONS (23)
  - Pulmonary embolism [Not Recovered/Not Resolved]
  - Colitis [Not Recovered/Not Resolved]
  - Neutropenic sepsis [Not Recovered/Not Resolved]
  - Nausea [Unknown]
  - Diarrhoea [Unknown]
  - Mean cell haemoglobin increased [Unknown]
  - Chest pain [Unknown]
  - Haematocrit decreased [Unknown]
  - Red blood cell count decreased [Unknown]
  - Mean cell volume increased [Unknown]
  - Monocyte count decreased [Unknown]
  - Anorectal malformation [Unknown]
  - Ulcer [Unknown]
  - Blood bicarbonate increased [Unknown]
  - Neutrophil count increased [Unknown]
  - Haemoglobin decreased [Unknown]
  - Lymphocyte count decreased [Unknown]
  - White blood cell count increased [Unknown]
  - Neutrophil count decreased [Unknown]
  - White blood cell count decreased [Unknown]
  - Blood sodium decreased [Unknown]
  - Asthenia [Unknown]
  - Malaise [Unknown]

NARRATIVE: CASE EVENT DATE: 20230305
